FAERS Safety Report 16222705 (Version 2)
Quarter: 2019Q2

REPORT INFORMATION
  Report Type: Spontaneous
  Country: US (occurrence: US)
  Receive Date: 20190422
  Receipt Date: 20190423
  Transmission Date: 20190711
  Serious: Yes (Other)
  Sender: FDA-Public Use
  Company Number: US-PFIZER INC-2019166845

PATIENT
  Sex: Female

DRUGS (1)
  1. TOVIAZ [Suspect]
     Active Substance: FESOTERODINE FUMARATE
     Dosage: 4 MG, UNK (FOR LESS THAN A WEEK)

REACTIONS (4)
  - Bladder outlet obstruction [Unknown]
  - Muscle spasms [Unknown]
  - Urinary hesitation [Unknown]
  - Urinary retention [Unknown]

NARRATIVE: CASE EVENT DATE: 20190415
